FAERS Safety Report 11468376 (Version 2)
Quarter: 2015Q3

REPORT INFORMATION
  Report Type: Spontaneous
  Country: US (occurrence: US)
  Receive Date: 20150903
  Receipt Date: 20150903
  Transmission Date: 20151125
  Serious: No
  Sender: FDA-Public Use
  Company Number: US-ELI_LILLY_AND_COMPANY-US201108003890

PATIENT
  Age: 63 Year
  Sex: Female

DRUGS (3)
  1. CYMBALTA [Suspect]
     Active Substance: DULOXETINE HYDROCHLORIDE
     Dosage: 60 MG, QD
     Dates: start: 201106
  2. CYMBALTA [Suspect]
     Active Substance: DULOXETINE HYDROCHLORIDE
     Indication: DEPRESSION
     Dosage: 30 MG, QD
     Dates: start: 201106, end: 201106
  3. ANTIHYPERTENSIVES [Concomitant]
     Active Substance: UNSPECIFIED INGREDIENT

REACTIONS (14)
  - Diarrhoea [Unknown]
  - Dry mouth [Recovering/Resolving]
  - Nausea [Recovering/Resolving]
  - Constipation [Recovering/Resolving]
  - Chills [Recovering/Resolving]
  - Functional gastrointestinal disorder [Recovering/Resolving]
  - Somnolence [Recovering/Resolving]
  - Apathy [Recovering/Resolving]
  - Abdominal discomfort [Recovering/Resolving]
  - Pyrexia [Recovered/Resolved]
  - Eye irritation [Recovering/Resolving]
  - Headache [Recovering/Resolving]
  - Drug effect decreased [Recovered/Resolved]
  - Influenza [Recovered/Resolved]

NARRATIVE: CASE EVENT DATE: 20110805
